FAERS Safety Report 8303879-6 (Version None)
Quarter: 2012Q2

REPORT INFORMATION
  Report Type: 
  Country: None (occurrence: None)
  Receive Date: 20120420
  Receipt Date: 20120420
  Transmission Date: 20120825
  Serious: Yes (Hospitalization)
  Sender: FDA-Public Use
  Company Number: None

PATIENT
  Age: 51 Year
  Sex: Female

DRUGS (4)
  1. RIBAVIRIN [Suspect]
     Dosage: 1000 MG DAILY PO
     Route: 048
     Dates: start: 20120101, end: 20120304
  2. TACROLIMUS [Concomitant]
  3. PEGASYS [Suspect]
     Dosage: 180MCG WEEKLY SQ
     Route: 058
     Dates: start: 20120101, end: 20120304
  4. MYCOPHENOLATE MOFETIL [Concomitant]

REACTIONS (3)
  - VISUAL ACUITY REDUCED [None]
  - HAEMOGLOBIN DECREASED [None]
  - MOTOR DYSFUNCTION [None]
